FAERS Safety Report 8241426-8 (Version None)
Quarter: 2012Q1

REPORT INFORMATION
  Report Type: 
  Country: None (occurrence: None)
  Receive Date: 20120328
  Receipt Date: 20120321
  Transmission Date: 20120608
  Serious: Yes (Hospitalization, Disabling, Other)
  Sender: FDA-Public Use
  Company Number: US-ABBOTT-12P-163-0917044-00

PATIENT
  Age: 25 Year
  Sex: Female

DRUGS (2)
  1. INTRAUTERINE DEVICE [Concomitant]
     Indication: PRODUCT USED FOR UNKNOWN INDICATION
  2. MERIDIA [Suspect]
     Indication: WEIGHT DECREASED
     Route: 048
     Dates: start: 20100912, end: 20101006

REACTIONS (10)
  - APHASIA [None]
  - GAIT DISTURBANCE [None]
  - NEUROLOGICAL SYMPTOM [None]
  - PAIN [None]
  - EMOTIONAL DISTRESS [None]
  - EMBOLIC STROKE [None]
  - PARALYSIS [None]
  - DISABILITY [None]
  - HEMIPARESIS [None]
  - MONOPARESIS [None]
